FAERS Safety Report 6738608-0 (Version None)
Quarter: 2010Q2

REPORT INFORMATION
  Report Type: 
  Country: None (occurrence: None)
  Receive Date: 20100524
  Receipt Date: 20100512
  Transmission Date: 20101027
  Serious: Yes (Other)
  Sender: FDA-Public Use
  Company Number: GB-PFIZER INC-2010059675

PATIENT
  Sex: Female
  Weight: 55 kg

DRUGS (3)
  1. DOXYCYCLINE MONOHYDRATE [Suspect]
     Indication: MALARIA PROPHYLAXIS
     Dosage: 100 MG, UNK
     Route: 048
     Dates: start: 20100403, end: 20100427
  2. ACETAMINOPHEN AND CODEINE PHOSPHATE [Concomitant]
     Indication: NECK PAIN
     Dosage: UNK
     Route: 048
     Dates: start: 20100329, end: 20100402
  3. NORDETTE-28 [Concomitant]
     Indication: CONTRACEPTION
     Dosage: UNK
     Route: 048
     Dates: start: 20090422

REACTIONS (2)
  - ALOPECIA [None]
  - PHOTOSENSITIVITY REACTION [None]
